FAERS Safety Report 17297925 (Version 3)
Quarter: 2024Q4

REPORT INFORMATION
  Report Type: Report from Study
  Country: IT (occurrence: IT)
  Receive Date: 20200122
  Receipt Date: 20241112
  Transmission Date: 20250114
  Serious: Yes (Hospitalization)
  Sender: TEVA
  Company Number: None

PATIENT
  Age: 79 Year
  Sex: Female

DRUGS (11)
  1. METFORMIN [Suspect]
     Active Substance: METFORMIN HYDROCHLORIDE
     Indication: Drug abuse
     Dosage: TIME INTERVAL: TOTAL
     Route: 048
     Dates: start: 20191124, end: 20191124
  2. BISOPROLOL [Suspect]
     Active Substance: BISOPROLOL
     Indication: Drug abuse
     Dosage: TIME INTERVAL: TOTAL: BISOPROLOL FUMARATE
     Route: 048
     Dates: start: 20191124, end: 20191124
  3. RAMIPRIL [Suspect]
     Active Substance: RAMIPRIL
     Indication: Drug abuse
     Dosage: TIME INTERVAL: TOTAL
     Route: 048
     Dates: start: 20191124, end: 20191124
  4. ASPIRIN [Suspect]
     Active Substance: ASPIRIN
     Indication: Drug abuse
     Dosage: TIME INTERVAL: TOTAL
     Route: 048
     Dates: start: 20191124, end: 20191124
  5. VENLAFAXINE [Suspect]
     Active Substance: VENLAFAXINE HYDROCHLORIDE
     Indication: Drug abuse
     Dosage: TIME INTERVAL: TOTAL
     Route: 048
     Dates: start: 20191124, end: 20191124
  6. ALLOPURINOL [Suspect]
     Active Substance: ALLOPURINOL
     Indication: Drug abuse
     Dosage: TIME INTERVAL: TOTAL
     Route: 048
     Dates: start: 20191124, end: 20191124
  7. BARNIDIPINE HYDROCHLORIDE [Suspect]
     Active Substance: BARNIDIPINE HYDROCHLORIDE
     Indication: Drug abuse
     Dosage: TIME INTERVAL: TOTAL
     Route: 048
     Dates: start: 20191124, end: 20191124
  8. CANRENONE [Suspect]
     Active Substance: CANRENONE
     Indication: Drug abuse
     Dosage: TIME INTERVAL: TOTAL
     Route: 048
     Dates: start: 20191124, end: 20191124
  9. PREGABALIN [Suspect]
     Active Substance: PREGABALIN
     Indication: Drug abuse
     Dosage: TIME INTERVAL: TOTAL
     Route: 048
     Dates: start: 20191124, end: 20191124
  10. LASIX [Suspect]
     Active Substance: FUROSEMIDE
     Indication: Drug abuse
     Dosage: TIME INTERVAL: TOTAL
     Route: 048
     Dates: start: 20191124, end: 20191124
  11. FERROUS SULFATE [Suspect]
     Active Substance: FERROUS SULFATE
     Indication: Drug abuse
     Dosage: TIME INTERVAL: TOTAL
     Route: 048
     Dates: start: 20191124, end: 20191124

REACTIONS (3)
  - Sopor [Recovering/Resolving]
  - Drug abuse [Recovering/Resolving]
  - Lactic acidosis [Recovering/Resolving]

NARRATIVE: CASE EVENT DATE: 20191124
